FAERS Safety Report 16859006 (Version 1)
Quarter: 2019Q3

REPORT INFORMATION
  Report Type: Report from Study
  Country: US (occurrence: US)
  Receive Date: 20190926
  Receipt Date: 20190926
  Transmission Date: 20191005
  Serious: No
  Sender: FDA-Public Use
  Company Number: PHEH2019US039533

PATIENT
  Age: 28 Year
  Sex: Male

DRUGS (1)
  1. COSENTYX [Suspect]
     Active Substance: SECUKINUMAB
     Indication: PSORIATIC ARTHROPATHY
     Dosage: UNK UNK, QW (QW FOR 5 WEEKS, THEN Q4W)
     Route: 058
     Dates: start: 20190921

REACTIONS (2)
  - Macule [Unknown]
  - Skin irritation [Unknown]

NARRATIVE: CASE EVENT DATE: 20190923
